FAERS Safety Report 8224086-1 (Version None)
Quarter: 2012Q1

REPORT INFORMATION
  Report Type: 
  Country: None (occurrence: None)
  Receive Date: 20120321
  Receipt Date: 20120316
  Transmission Date: 20120608
  Serious: Yes (Other)
  Sender: FDA-Public Use
  Company Number: PHHY2012FR023844

PATIENT
  Sex: Female

DRUGS (1)
  1. ZOMETA [Suspect]
     Dosage: 1 INFUSION, QMO
     Dates: start: 20061201, end: 20090101

REACTIONS (3)
  - ORAL PAIN [None]
  - LOOSE TOOTH [None]
  - TOOTH LOSS [None]
